FAERS Safety Report 14288250 (Version 1)
Quarter: 2017Q4

REPORT INFORMATION
  Report Type: Spontaneous
  Country: US (occurrence: US)
  Receive Date: 20171214
  Receipt Date: 20171214
  Transmission Date: 20180321
  Serious: Yes (Hospitalization)
  Sender: FDA-Public Use
  Company Number: US-TEVA-2017-US-832048

PATIENT
  Age: 25 Year
  Sex: Female
  Weight: 64 kg

DRUGS (3)
  1. COPAXONE [Suspect]
     Active Substance: GLATIRAMER ACETATE
     Indication: MULTIPLE SCLEROSIS
     Dosage: 17.1429 MILLIGRAM/MILLILITERS DAILY;
     Route: 058
     Dates: start: 201704, end: 20171117
  2. DEPO-PROVERA [Concomitant]
     Active Substance: MEDROXYPROGESTERONE ACETATE
     Indication: CONTRACEPTION
     Dates: start: 20171106
  3. PREDNISONE. [Suspect]
     Active Substance: PREDNISONE
     Route: 065
     Dates: start: 201711

REACTIONS (7)
  - Injection site rash [Recovered/Resolved]
  - Gastrooesophageal reflux disease [Recovered/Resolved]
  - Rash generalised [Unknown]
  - Lip swelling [Unknown]
  - Pyrexia [Recovered/Resolved]
  - Chest pain [Recovered/Resolved]
  - Peripheral swelling [Unknown]

NARRATIVE: CASE EVENT DATE: 201704
